FAERS Safety Report 4548500-8 (Version None)
Quarter: 2005Q1

REPORT INFORMATION
  Report Type: 
  Country: None (occurrence: None)
  Receive Date: 20050110
  Receipt Date: 20040908
  Transmission Date: 20050727
  Serious: Yes (Hospitalization)
  Sender: FDA-Public Use
  Company Number: FR-GLAXOSMITHKLINE-B0344866A

PATIENT
  Age: 69 Year
  Sex: Female
  Weight: 99 kg

DRUGS (19)
  1. ZINNAT INJECTABLE [Suspect]
     Indication: ILL-DEFINED DISORDER
     Dosage: 750MG THREE TIMES PER DAY
     Route: 042
     Dates: start: 20040805, end: 20040806
  2. EFFERALGAN CODEINE [Suspect]
     Dosage: 2UNIT THREE TIMES PER DAY
     Route: 048
     Dates: start: 20040806, end: 20040808
  3. VENOFER [Suspect]
     Dosage: 2UNIT ALTERNATE DAYS
     Route: 042
     Dates: start: 20040805, end: 20040807
  4. CONTRAMAL [Suspect]
     Dosage: 150MG TWICE PER DAY
     Route: 048
     Dates: start: 20040806, end: 20040808
  5. LOVENOX [Concomitant]
     Dosage: 40MG PER DAY
     Route: 058
     Dates: start: 20040805
  6. THIOPENTAL SODIUM [Concomitant]
     Indication: GENERAL ANAESTHESIA
     Dates: start: 20040805, end: 20040805
  7. SUFENTANIL CITRATE [Concomitant]
     Indication: GENERAL ANAESTHESIA
     Dates: start: 20040805, end: 20040805
  8. CELOCURINE [Concomitant]
     Indication: GENERAL ANAESTHESIA
     Dates: start: 20040805, end: 20040805
  9. MIDAZOLAM HCL [Concomitant]
     Indication: GENERAL ANAESTHESIA
     Dates: start: 20040805, end: 20040805
  10. KETAMINE HCL [Concomitant]
     Indication: GENERAL ANAESTHESIA
     Dates: start: 20040805, end: 20040805
  11. NAROPIN [Concomitant]
     Indication: GENERAL ANAESTHESIA
     Dates: start: 20040805, end: 20040805
  12. CLONIDINE [Concomitant]
     Indication: GENERAL ANAESTHESIA
     Dates: start: 20040805, end: 20040805
  13. MORPHINE [Concomitant]
     Indication: POSTOPERATIVE ANALGESIA
     Route: 042
     Dates: start: 20040805
  14. KETOPROFEN [Concomitant]
     Indication: POSTOPERATIVE ANALGESIA
     Dates: start: 20040805
  15. ACUPAN [Concomitant]
     Indication: POSTOPERATIVE ANALGESIA
     Dates: start: 20040805
  16. ZAMUDOL [Concomitant]
     Indication: POSTOPERATIVE ANALGESIA
     Dates: start: 20040805
  17. ICAZ [Concomitant]
  18. CO-APROVEL [Concomitant]
  19. RIVOTRIL [Concomitant]

REACTIONS (5)
  - AGITATION [None]
  - ANXIETY [None]
  - CRYING [None]
  - DELIRIUM [None]
  - HALLUCINATION [None]
